FAERS Safety Report 9694041 (Version 6)
Quarter: 2019Q2

REPORT INFORMATION
  Report Type: Report from Study
  Country: None (occurrence: US)
  Receive Date: 20131118
  Receipt Date: 20190628
  Transmission Date: 20190711
  Serious: Yes (Other)
  Sender: FDA-Public Use
  Company Number: US-ABBVIE-13P-163-1054947-00

PATIENT
  Age: 64 Year
  Sex: Female
  Weight: 66.28 kg

DRUGS (25)
  1. PROLYRIA [Concomitant]
     Indication: OSTEOPOROSIS
     Route: 058
  2. OMEGA 3 [Concomitant]
     Active Substance: OMEGA-3 FATTY ACIDS
     Indication: SUPPLEMENTATION THERAPY
     Dosage: DAILY
  3. VITAMIN C [Concomitant]
     Active Substance: ASCORBIC ACID
     Indication: VITAMIN SUPPLEMENTATION
     Dosage: 100 MG DAILY
  4. VITAMIN D3 [Concomitant]
     Active Substance: CHOLECALCIFEROL
     Indication: VITAMIN SUPPLEMENTATION
     Dosage: 2000 IU DAILY
  5. FLAX SEED [Concomitant]
     Active Substance: FLAX SEED
     Indication: PRODUCT USED FOR UNKNOWN INDICATION
  6. HUMIRA [Suspect]
     Active Substance: ADALIMUMAB
     Route: 058
  7. CALCIUM WITH VITAMIN D [Concomitant]
     Active Substance: CALCIUM\VITAMIN D
     Indication: MINERAL SUPPLEMENTATION
     Dosage: 600 MG DAILY
  8. OMEPRAZOLE. [Concomitant]
     Active Substance: OMEPRAZOLE
     Indication: GASTROOESOPHAGEAL REFLUX DISEASE
     Dosage: 20 MG DAILY
  9. ZOLOFT [Concomitant]
     Active Substance: SERTRALINE HYDROCHLORIDE
     Indication: DEPRESSION
     Dosage: 50 MG DAILY
  10. MAGNESIUM [Concomitant]
     Active Substance: MAGNESIUM
     Indication: PRODUCT USED FOR UNKNOWN INDICATION
  11. HUMIRA [Suspect]
     Active Substance: ADALIMUMAB
     Dosage: CITRATE FREE
     Route: 058
  12. PROLIA [Concomitant]
     Active Substance: DENOSUMAB
     Indication: OSTEOPOROSIS
  13. EMERGENT C [Concomitant]
     Indication: PRODUCT USED FOR UNKNOWN INDICATION
  14. CALCIUM [Concomitant]
     Active Substance: CALCIUM
     Indication: PRODUCT USED FOR UNKNOWN INDICATION
  15. BIO OIL [Concomitant]
     Indication: KELOID SCAR
     Dates: start: 2013
  16. ZOLOFT [Concomitant]
     Active Substance: SERTRALINE HYDROCHLORIDE
     Indication: ANXIETY DISORDER
  17. VITAMIN B12 [Concomitant]
     Active Substance: CYANOCOBALAMIN
     Indication: VITAMIN SUPPLEMENTATION
     Dosage: 1000 MCG DAILY
  18. METHOTREXATE. [Concomitant]
     Active Substance: METHOTREXATE
     Indication: RHEUMATOID ARTHRITIS
     Dosage: 2.5 MG X 6 WEEKLY
  19. HYDROCODONE [Concomitant]
     Active Substance: HYDROCODONE
     Indication: FIBROMYALGIA
     Dosage: 5/325 MG AS NEEDED
  20. SYNTHROID [Concomitant]
     Active Substance: LEVOTHYROXINE SODIUM
     Indication: HYPOTHYROIDISM
     Dosage: 112 MCG DAILY
  21. GABAPENTIN. [Concomitant]
     Active Substance: GABAPENTIN
     Indication: FIBROMYALGIA
  22. FOLIC ACID. [Concomitant]
     Active Substance: FOLIC ACID
     Indication: VITAMIN SUPPLEMENTATION
     Dosage: 1 MG DAILY
  23. XANAX [Concomitant]
     Active Substance: ALPRAZOLAM
     Indication: ANXIETY DISORDER
     Dosage: 0.5 MG DAILY
  24. TRAZODONE [Concomitant]
     Active Substance: TRAZODONE HYDROCHLORIDE
     Indication: INSOMNIA
     Dosage: AT BEDTIME
  25. HUMIRA [Suspect]
     Active Substance: ADALIMUMAB
     Indication: RHEUMATOID ARTHRITIS
     Route: 058
     Dates: start: 201211, end: 20121208

REACTIONS (32)
  - Wound [Unknown]
  - Anxiety disorder [Unknown]
  - Bronchitis [Recovered/Resolved]
  - Cellulitis [Unknown]
  - Chest pain [Unknown]
  - Back pain [Unknown]
  - Tendon pain [Recovered/Resolved]
  - Keloid scar [Recovered/Resolved]
  - Viral rash [Unknown]
  - Ear discomfort [Unknown]
  - Pain [Unknown]
  - Exostosis [Recovered/Resolved]
  - Bone disorder [Recovered/Resolved]
  - Tendon pain [Not Recovered/Not Resolved]
  - Intervertebral disc protrusion [Unknown]
  - Viral infection [Recovered/Resolved]
  - Arthralgia [Unknown]
  - Bone density decreased [Not Recovered/Not Resolved]
  - Infection [Recovered/Resolved]
  - Joint stiffness [Not Recovered/Not Resolved]
  - Thermal burn [Unknown]
  - Nervous system disorder [Recovering/Resolving]
  - Exostosis [Not Recovered/Not Resolved]
  - Depression [Recovering/Resolving]
  - Contusion [Unknown]
  - Thyroid disorder [Unknown]
  - Drug ineffective [Unknown]
  - Injection site pain [Unknown]
  - Dermatitis allergic [Unknown]
  - Impaired healing [Unknown]
  - Peripheral swelling [Not Recovered/Not Resolved]
  - Fibromyalgia [Unknown]

NARRATIVE: CASE EVENT DATE: 2012
